FAERS Safety Report 7169215-6 (Version None)
Quarter: 2010Q4

REPORT INFORMATION
  Report Type: 
  Country: None (occurrence: None)
  Receive Date: 20101216
  Receipt Date: 20100119
  Transmission Date: 20110411
  Serious: Yes (Other)
  Sender: FDA-Public Use
  Company Number: US-AMGEN-KDL386784

PATIENT

DRUGS (1)
  1. ENBREL [Suspect]
     Indication: RHEUMATOID ARTHRITIS
     Dosage: 25 MG, UNK
     Route: 058
     Dates: start: 19990201

REACTIONS (5)
  - CELLULITIS [None]
  - DRUG INEFFECTIVE [None]
  - MALIGNANT MELANOMA [None]
  - RASH [None]
  - RHEUMATOID ARTHRITIS [None]
